FAERS Safety Report 9521825 (Version 2)
Quarter: 2013Q4

REPORT INFORMATION
  Report Type: Report from Study
  Country: RU (occurrence: RU)
  Receive Date: 20130913
  Receipt Date: 20131002
  Transmission Date: 20140711
  Serious: Yes (Hospitalization, Other)
  Sender: FDA-Public Use
  Company Number: PHHY2013RU100995

PATIENT
  Age: 54 Year
  Sex: Female

DRUGS (1)
  1. ACLASTA [Suspect]
     Indication: OSTEOPOROSIS
     Dosage: UNK UKN, UNK
     Route: 042

REACTIONS (3)
  - Asthma [Unknown]
  - Thoracic vertebral fracture [Unknown]
  - Spinal compression fracture [Not Recovered/Not Resolved]
